FAERS Safety Report 8816846 (Version 1)
Quarter: 2012Q4

REPORT INFORMATION
  Report Type: Spontaneous
  Country: US (occurrence: None)
  Receive Date: 20121002
  Receipt Date: 20121002
  Transmission Date: 20130627
  Serious: Yes (Life-Threatening, Hospitalization, Disabling)
  Sender: FDA-Public Use
  Company Number: None

PATIENT
  Age: 24 Year
  Sex: Female
  Weight: 77.11 kg

DRUGS (1)
  1. MIRENA [Suspect]
     Indication: BIRTH CONTROL
     Route: 067
     Dates: start: 20090203, end: 20111201

REACTIONS (9)
  - Dizziness [None]
  - Panic attack [None]
  - Nausea [None]
  - Blepharospasm [None]
  - Anxiety [None]
  - Depression [None]
  - Suicidal ideation [None]
  - Insomnia [None]
  - Weight increased [None]
